FAERS Safety Report 6922264-2 (Version None)
Quarter: 2010Q3

REPORT INFORMATION
  Report Type: 
  Country: None (occurrence: None)
  Receive Date: 20100813
  Receipt Date: 20100804
  Transmission Date: 20110219
  Serious: Yes (Hospitalization)
  Sender: FDA-Public Use
  Company Number: US-BIOGENIDEC-2010BI027051

PATIENT
  Age: 36 Year
  Sex: Female
  Weight: 107 kg

DRUGS (5)
  1. TYSABRI [Suspect]
     Indication: MULTIPLE SCLEROSIS
     Route: 042
     Dates: start: 20090226, end: 20100401
  2. BACLOFEN [Concomitant]
     Indication: MUSCLE SPASMS
     Dates: start: 19990101
  3. DIAZEPAM [Concomitant]
     Indication: MUSCLE SPASMS
     Dates: start: 19960101
  4. CYMBALTA [Concomitant]
     Indication: PAIN
     Dates: start: 20090101
  5. AMBIEN [Concomitant]
     Indication: INSOMNIA
     Dates: start: 20010101

REACTIONS (11)
  - ACUTE CORONARY SYNDROME [None]
  - ACUTE RESPIRATORY FAILURE [None]
  - COAGULOPATHY [None]
  - CONTUSION [None]
  - DYSPNOEA [None]
  - FOOT FRACTURE [None]
  - HAEMATEMESIS [None]
  - MIGRAINE [None]
  - MULTI-ORGAN FAILURE [None]
  - PAIN [None]
  - PNEUMONIA [None]
